FAERS Safety Report 9366624 (Version 1)
Quarter: 2013Q2

REPORT INFORMATION
  Report Type: Spontaneous
  Country: US (occurrence: US)
  Receive Date: 20130625
  Receipt Date: 20130625
  Transmission Date: 20140414
  Serious: No
  Sender: FDA-Public Use
  Company Number: US-009507513-1306USA010654

PATIENT
  Age: 42 Year
  Sex: Male

DRUGS (2)
  1. NASONEX [Suspect]
     Indication: NASAL CONGESTION
     Dosage: TWO SPRAYS IN EACH NOSTRIL EVERY DAY
     Route: 045
  2. LUNESTA [Concomitant]
     Dosage: UNK

REACTIONS (2)
  - Drug dose omission [Unknown]
  - Product odour abnormal [Unknown]
